FAERS Safety Report 26066099 (Version 1)
Quarter: 2025Q4

REPORT INFORMATION
  Report Type: Report from Study
  Country: US (occurrence: US)
  Receive Date: 20251119
  Receipt Date: 20251119
  Transmission Date: 20260117
  Serious: Yes (Other)
  Sender: TAKEDA
  Company Number: US-TAKEDA-2025TUS102389

PATIENT
  Age: 65 Year
  Sex: Female

DRUGS (1)
  1. HUMAN IMMUNOGLOBULIN G [Suspect]
     Active Substance: HUMAN IMMUNOGLOBULIN G
     Indication: Immunodeficiency common variable
     Dosage: 10 GRAM, Q2WEEKS

REACTIONS (5)
  - Blood pressure increased [Unknown]
  - Headache [Unknown]
  - Chest discomfort [Unknown]
  - Palpitations [Unknown]
  - Body temperature increased [Unknown]

NARRATIVE: CASE EVENT DATE: 20251112
